FAERS Safety Report 16304516 (Version 1)
Quarter: 2019Q2

REPORT INFORMATION
  Report Type: Spontaneous
  Country: US (occurrence: US)
  Receive Date: 20190513
  Receipt Date: 20190513
  Transmission Date: 20190711
  Serious: No
  Sender: FDA-Public Use
  Company Number: US-PFIZER INC-2019201594

PATIENT
  Age: 68 Year
  Sex: Male

DRUGS (1)
  1. NALOXONE HCL [Suspect]
     Active Substance: NALOXONE HYDROCHLORIDE
     Dosage: UNK
     Dates: start: 20190114

REACTIONS (4)
  - Headache [Unknown]
  - Feeling cold [Unknown]
  - Migraine [Unknown]
  - Peripheral coldness [Unknown]
